FAERS Safety Report 9286210 (Version 2)
Quarter: 2013Q4

REPORT INFORMATION
  Report Type: Spontaneous
  Country: GB (occurrence: None)
  Receive Date: 20130508
  Receipt Date: 20131017
  Transmission Date: 20140711
  Serious: Yes (Disabling)
  Sender: FDA-Public Use
  Company Number: AUR-APL-2013-03682

PATIENT
  Age: 55 Year
  Sex: Male
  Weight: 74.6 kg

DRUGS (5)
  1. GABAPENTIN (GABAPENTIN) [Suspect]
     Indication: PRODUCT USED FOR UNKNOWN INDICATION
     Dosage: STOPPED?
     Dates: start: 20121205
  2. AMITRYIPYLINE HYDROCHLORIDE (AMITRYIPYLINE HYDROCHLORIDE) [Concomitant]
  3. BACLOFEN (BACLOFEN) [Concomitant]
  4. MORPHINE SULPHATE (MORPHINE SULFATE) [Concomitant]
  5. ZOMORPH (MORPHINE SULFATE) [Concomitant]

REACTIONS (3)
  - Athetosis [None]
  - Gynaecomastia [None]
  - Tremor [None]
